FAERS Safety Report 8494458-9 (Version None)
Quarter: 2012Q2

REPORT INFORMATION
  Report Type: 
  Country: None (occurrence: None)
  Receive Date: 20120627
  Receipt Date: 20120611
  Transmission Date: 20120825
  Serious: Yes (Death)
  Sender: FDA-Public Use
  Company Number: EU-2012-10164

PATIENT
  Age: 72 Year

DRUGS (2)
  1. SAMSCA [Suspect]
     Indication: HYPONATRAEMIA
     Dosage: 15 MG, DAILY DOSE
     Dates: start: 20111129, end: 20120101
  2. SAMSCA [Suspect]
     Indication: PARANEOPLASTIC SYNDROME
     Dosage: 15 MG, DAILY DOSE
     Dates: start: 20111129, end: 20120101

REACTIONS (2)
  - NEOPLASM MALIGNANT [None]
  - LUNG CANCER METASTATIC [None]
